FAERS Safety Report 16052014 (Version 2)
Quarter: 2019Q2

REPORT INFORMATION
  Report Type: Spontaneous
  Country: US (occurrence: US)
  Receive Date: 20190308
  Receipt Date: 20190409
  Transmission Date: 20190711
  Serious: No
  Sender: FDA-Public Use
  Company Number: US-SA-2019SA054537

PATIENT
  Age: 68 Year
  Sex: Male
  Weight: 76 kg

DRUGS (7)
  1. CENTRUM SILVER ADULTS 50+ [Suspect]
     Active Substance: MINERALS\VITAMINS
     Indication: VITAMIN SUPPLEMENTATION
     Dosage: 1 DF, QD
     Route: 048
  2. BORON/CALCIUM/COLECALCIFEROL/COPPER/MAGNESIUM/MANGANESE/ZINC [Suspect]
     Active Substance: CALCIUM CARBONATE\CHOLECALCIFEROL\MINERALS
     Indication: SUPPLEMENTATION THERAPY
     Dosage: 1 DF, BID
     Route: 065
  3. VITAMIN B12 [Concomitant]
     Active Substance: CYANOCOBALAMIN
  4. TAMSULOSIN HYDROCHLORIDE. [Suspect]
     Active Substance: TAMSULOSIN HYDROCHLORIDE
     Indication: PROSTATIC DISORDER
     Dosage: 04 MG, AT BEDTIME
     Route: 048
  5. GINKOBAL [Concomitant]
  6. VITAMIN C [Concomitant]
     Active Substance: ASCORBIC ACID
     Dosage: UNK
  7. IRON [Concomitant]
     Active Substance: IRON

REACTIONS (2)
  - Muscular weakness [Not Recovered/Not Resolved]
  - Joint swelling [Not Recovered/Not Resolved]
